FAERS Safety Report 5848578-5 (Version None)
Quarter: 2008Q3

REPORT INFORMATION
  Report Type: 
  Country: None (occurrence: None)
  Receive Date: 20080815
  Receipt Date: 20080815
  Transmission Date: 20090109
  Serious: Yes (Other)
  Sender: FDA-Public Use
  Company Number: None

PATIENT
  Age: 41 Year
  Sex: Female
  Weight: 99.7913 kg

DRUGS (1)
  1. OMEPRAZOLE 20MG-DELAYED RELEASE STORE BRAND-HEB [Suspect]
     Indication: GASTROOESOPHAGEAL REFLUX DISEASE
     Dosage: 1 QD PO, APPROX 4 MONTHS
     Route: 048

REACTIONS (12)
  - ARTHRALGIA [None]
  - CHEST DISCOMFORT [None]
  - DIZZINESS [None]
  - DYSPNOEA [None]
  - FATIGUE [None]
  - HAEMATOCRIT ABNORMAL [None]
  - HEART RATE INCREASED [None]
  - INSOMNIA [None]
  - OEDEMA PERIPHERAL [None]
  - OVERWEIGHT [None]
  - PAIN IN EXTREMITY [None]
  - STRESS [None]
